FAERS Safety Report 4422922-8 (Version None)
Quarter: 2004Q3

REPORT INFORMATION
  Report Type: 
  Country: None (occurrence: None)
  Receive Date: 20040806
  Receipt Date: 20040729
  Transmission Date: 20050211
  Serious: Yes (Death)
  Sender: FDA-Public Use
  Company Number: US-JNJFOC-20040800557

PATIENT
  Sex: Female

DRUGS (3)
  1. RISPERDAL [Suspect]
     Indication: DEPRESSION
     Dosage: 2 MG, 1 IN 1 DAY, ORAL
     Route: 048
     Dates: start: 20040305, end: 20040315
  2. RISPERDAL [Suspect]
     Indication: PSYCHOTIC DISORDER
     Dosage: 2 MG, 1 IN 1 DAY, ORAL
     Route: 048
     Dates: start: 20040305, end: 20040315
  3. PAXIL [Concomitant]

REACTIONS (12)
  - CANDIDURIA [None]
  - CARDIAC ARREST [None]
  - DRUG INTERACTION [None]
  - METABOLIC ENCEPHALOPATHY [None]
  - NEUTROPENIA [None]
  - PANCYTOPENIA [None]
  - PLATELET COUNT DECREASED [None]
  - PSEUDOMONAS INFECTION [None]
  - RESPIRATORY FAILURE [None]
  - SEPSIS [None]
  - SPUTUM CULTURE POSITIVE [None]
  - WHITE BLOOD CELL COUNT DECREASED [None]
